FAERS Safety Report 7937839-1 (Version None)
Quarter: 2011Q4

REPORT INFORMATION
  Report Type: 
  Country: None (occurrence: None)
  Receive Date: 20111123
  Receipt Date: 20111114
  Transmission Date: 20120403
  Serious: Yes (Death)
  Sender: FDA-Public Use
  Company Number: JP-MERCK-1111USA02043

PATIENT
  Age: 79 Year
  Sex: Male

DRUGS (6)
  1. JANUVIA [Suspect]
     Indication: TYPE 2 DIABETES MELLITUS
     Route: 048
     Dates: start: 20100422
  2. GLYBURIDE [Concomitant]
     Route: 065
     Dates: start: 20060101, end: 20100601
  3. BASEN [Concomitant]
     Route: 065
     Dates: start: 20080401
  4. INNOLET 30 [Concomitant]
     Route: 065
     Dates: start: 20100601
  5. EPLERENONE [Concomitant]
     Route: 065
  6. ASPIRIN [Concomitant]
     Route: 065

REACTIONS (1)
  - CEREBRAL HAEMORRHAGE [None]
